FAERS Safety Report 5890234-1 (Version None)
Quarter: 2008Q3

REPORT INFORMATION
  Report Type: 
  Country: None (occurrence: None)
  Receive Date: 20080919
  Receipt Date: 20080909
  Transmission Date: 20090109
  Serious: Yes (Other)
  Sender: FDA-Public Use
  Company Number: ZA-PFIZER INC-2008076353

PATIENT
  Age: 28 Year
  Sex: Female

DRUGS (5)
  1. NEURONTIN [Suspect]
     Indication: POST HERPETIC NEURALGIA
     Route: 048
     Dates: start: 20070101, end: 20070101
  2. LYRICA [Suspect]
     Indication: POST HERPETIC NEURALGIA
     Route: 048
     Dates: start: 20080101, end: 20080101
  3. TREPILINE [Suspect]
     Dates: start: 20080101
  4. ANALGESICS [Concomitant]
  5. TEGRETOL [Concomitant]
     Route: 048
     Dates: start: 20070101, end: 20070101

REACTIONS (2)
  - SENSORY DISTURBANCE [None]
  - WALKING DISABILITY [None]
